FAERS Safety Report 13992279 (Version 4)
Quarter: 2018Q1

REPORT INFORMATION
  Report Type: Spontaneous
  Country: US (occurrence: US)
  Receive Date: 20170920
  Receipt Date: 20180208
  Transmission Date: 20180508
  Serious: Yes (Hospitalization, Disabling, Other)
  Sender: FDA-Public Use
  Company Number: US-JNJFOC-20170713046

PATIENT
  Sex: Male

DRUGS (5)
  1. RISPERDAL [Suspect]
     Active Substance: RISPERIDONE
     Indication: PRODUCT USED FOR UNKNOWN INDICATION
     Route: 048
     Dates: start: 2016
  2. OLANZAPINE. [Suspect]
     Active Substance: OLANZAPINE
     Indication: MENTAL DISORDER
     Route: 048
  3. LIDEX [Concomitant]
     Active Substance: FLUOCINONIDE
     Dosage: DOSE: 0.05 PERCENT (UNITS UNSPECIFIED)
     Route: 061
     Dates: start: 2017
  4. RISPERDAL [Suspect]
     Active Substance: RISPERIDONE
     Indication: PRODUCT USED FOR UNKNOWN INDICATION
     Route: 048
     Dates: start: 20001220, end: 2015
  5. OLANZAPINE. [Suspect]
     Active Substance: OLANZAPINE
     Indication: MENTAL DISORDER
     Route: 048

REACTIONS (11)
  - Abscess [Unknown]
  - Hospitalisation [Unknown]
  - Neck mass [Not Recovered/Not Resolved]
  - Skin lesion [Not Recovered/Not Resolved]
  - Abscess neck [Not Recovered/Not Resolved]
  - Genital rash [Not Recovered/Not Resolved]
  - Gynaecomastia [Not Recovered/Not Resolved]
  - Genital lesion [Not Recovered/Not Resolved]
  - Breast discharge [Not Recovered/Not Resolved]
  - Pain [Unknown]
  - Rash generalised [Not Recovered/Not Resolved]

NARRATIVE: CASE EVENT DATE: 2014
